FAERS Safety Report 5901995-7 (Version None)
Quarter: 2008Q3

REPORT INFORMATION
  Report Type: 
  Country: None (occurrence: None)
  Receive Date: 20080929
  Receipt Date: 20070105
  Transmission Date: 20090109
  Serious: Yes (Life-Threatening, Hospitalization, Disabling, Other)
  Sender: FDA-Public Use
  Company Number: A0634509A

PATIENT
  Age: 50 Year
  Sex: Male

DRUGS (2)
  1. FORTAZ [Suspect]
     Indication: BRAIN ABSCESS
     Dosage: 2G THREE TIMES PER DAY
     Route: 042
  2. NO CONCURRENT MEDICATION [Concomitant]

REACTIONS (1)
  - DRUG INEFFECTIVE [None]
